FAERS Safety Report 10077111 (Version 2)
Quarter: 2014Q2

REPORT INFORMATION
  Report Type: Report from Study
  Country: NL (occurrence: NL)
  Receive Date: 20140414
  Receipt Date: 20140429
  Transmission Date: 20141212
  Serious: Yes (Hospitalization, Other)
  Sender: FDA-Public Use
  Company Number: PHHY2014NL044826

PATIENT
  Age: 75 Year
  Sex: Female

DRUGS (3)
  1. SANDOSTATIN LAR [Suspect]
     Indication: NEUROENDOCRINE TUMOUR
     Dosage: 20 MG/2 ML, ONCE EVERY 4 WEEKS
     Route: 030
     Dates: start: 20120320
  2. OMEPRAZOLE [Concomitant]
     Dosage: 40 MG, 3DD1
     Route: 048
  3. FOSFOMYCIN [Concomitant]
     Dosage: 3 GM, ONCE PER WEEK

REACTIONS (4)
  - Anaemia [Recovered/Resolved]
  - Haemorrhage [Recovered/Resolved]
  - Enterovesical fistula [Unknown]
  - Urinary tract infection [Unknown]
